FAERS Safety Report 6153641-8 (Version None)
Quarter: 2009Q2

REPORT INFORMATION
  Report Type: 
  Country: None (occurrence: None)
  Receive Date: 20090409
  Receipt Date: 20090401
  Transmission Date: 20091009
  Serious: Yes (Death)
  Sender: FDA-Public Use
  Company Number: ADE2009-0526

PATIENT
  Age: 49 Year
  Sex: Female

DRUGS (10)
  1. METFORMIN HCL [Suspect]
     Indication: DIABETES MELLITUS
     Dosage: 2G, ORAL
     Route: 048
  2. SOLIAN [Suspect]
     Dosage: 500MG, BID, ORAL
     Route: 048
  3. DIAZEPAM [Concomitant]
  4. HYDROCORTISON (TOPICAL) [Concomitant]
  5. INSULIN [Concomitant]
  6. NULYTELY [Concomitant]
  7. QUETIAPINE [Concomitant]
  8. SENNA [Concomitant]
  9. TRAZODONE [Concomitant]
  10. ZOPICLONE [Concomitant]

REACTIONS (3)
  - DRUG TOXICITY [None]
  - OVERDOSE [None]
  - SUDDEN DEATH [None]
